FAERS Safety Report 9429438 (Version 1)
Quarter: 2013Q3

REPORT INFORMATION
  Report Type: Spontaneous
  Country: US (occurrence: US)
  Receive Date: 20130730
  Receipt Date: 20130730
  Transmission Date: 20140515
  Serious: No
  Sender: FDA-Public Use
  Company Number: US-ABBOTT-13P-163-1056178-00

PATIENT
  Sex: Female
  Weight: 50.85 kg

DRUGS (7)
  1. NIASPAN (COATED) [Suspect]
     Indication: BLOOD CHOLESTEROL INCREASED
     Dosage: 1000 MG DAILY
     Route: 048
     Dates: start: 201008
  2. NIASPAN (COATED) [Suspect]
     Dosage: 500 MG DAILY
     Dates: start: 201006, end: 201008
  3. PRAVASTATIN [Concomitant]
     Indication: BLOOD CHOLESTEROL INCREASED
  4. XALATAN [Concomitant]
     Indication: GLAUCOMA
     Dosage: EYE DROPS
  5. AZOPT [Concomitant]
     Indication: GLAUCOMA
     Dosage: EYE DROPS
  6. CALCIUM + VITAMIN D [Concomitant]
     Indication: MINERAL SUPPLEMENTATION
  7. CALCIUM + VITAMIN D [Concomitant]
     Indication: VITAMIN SUPPLEMENTATION

REACTIONS (3)
  - Chest discomfort [Not Recovered/Not Resolved]
  - Vision blurred [Not Recovered/Not Resolved]
  - Hiatus hernia [Not Recovered/Not Resolved]
